FAERS Safety Report 5209406-4 (Version None)
Quarter: 2006Q4

REPORT INFORMATION
  Report Type: 
  Country: None (occurrence: None)
  Receive Date: 20061101
  Receipt Date: 20060620
  Transmission Date: 20070319
  Serious: No
  Sender: FDA-Public Use
  Company Number: 2006PV016072

PATIENT
  Age: 71 Year
  Sex: Female
  Weight: 51.7101 kg

DRUGS (4)
  1. SYMLIN [Suspect]
     Dosage: SEE IMAGE
     Route: 058
     Dates: start: 20060401, end: 20060501
  2. SYMLIN [Suspect]
     Dosage: SEE IMAGE
     Route: 058
     Dates: start: 20060501
  3. LANTUS [Concomitant]
  4. HUMALOG [Concomitant]

REACTIONS (3)
  - BLOOD GLUCOSE DECREASED [None]
  - INJECTION SITE BRUISING [None]
  - INJECTION SITE IRRITATION [None]
